FAERS Safety Report 7486583 (Version 4)
Quarter: 2017Q2

REPORT INFORMATION
  Report Type: Report from Study
  Country: US (occurrence: US)
  Receive Date: 20100716
  Receipt Date: 20170524
  Transmission Date: 20170830
  Serious: Yes (Hospitalization)
  Sender: FDA-Public Use
  Company Number: US-PFIZER INC-2010084826

PATIENT
  Age: 85 Year
  Sex: Female
  Weight: 61.6 kg

DRUGS (10)
  1. VALSARTAN. [Concomitant]
     Active Substance: VALSARTAN
  2. CELECOXIB. [Concomitant]
     Active Substance: CELECOXIB
  3. CATAPRES [Concomitant]
     Active Substance: CLONIDINE HYDROCHLORIDE
  4. CANDESARTAN. [Concomitant]
     Active Substance: CANDESARTAN
  5. BLINDED FESOTERODINE [Suspect]
     Active Substance: FESOTERODINE
     Indication: URGE INCONTINENCE
     Dosage: UNK UNK, 1X/DAY
     Dates: start: 20090820, end: 20091111
  6. BLINDED PLACEBO [Suspect]
     Active Substance: INVESTIGATIONAL PRODUCT
     Indication: URGE INCONTINENCE
     Dosage: UNK UNK, 1X/DAY
     Dates: start: 20090820, end: 20091111
  7. SIMVASTATIN. [Concomitant]
     Active Substance: SIMVASTATIN
  8. TOVIAZ [Suspect]
     Active Substance: FESOTERODINE FUMARATE
     Indication: URGE INCONTINENCE
     Dosage: 8 MG, 1X/DAY
     Route: 048
     Dates: start: 20091112, end: 20100616
  9. DILTIAZEM. [Concomitant]
     Active Substance: DILTIAZEM
  10. CLOPIDOGREL [Concomitant]
     Active Substance: CLOPIDOGREL BISULFATE

REACTIONS (1)
  - Intestinal obstruction [Recovered/Resolved]

NARRATIVE: CASE EVENT DATE: 20100616
